FAERS Safety Report 25197421 (Version 1)
Quarter: 2025Q2

REPORT INFORMATION
  Report Type: Spontaneous
  Country: US (occurrence: US)
  Receive Date: 20250415
  Receipt Date: 20250415
  Transmission Date: 20250716
  Serious: Yes (Life-Threatening, Hospitalization)
  Sender: CHEPLAPHARM
  Company Number: None

PATIENT
  Age: 50 Year
  Sex: Female

DRUGS (10)
  1. OLANZAPINE [Suspect]
     Active Substance: OLANZAPINE
  2. CLONIDINE [Suspect]
     Active Substance: CLONIDINE
  3. GABAPENTIN [Suspect]
     Active Substance: GABAPENTIN
  4. CYCLOBENZAPRINE [Suspect]
     Active Substance: CYCLOBENZAPRINE
  5. METHOCARBAMOL [Suspect]
     Active Substance: METHOCARBAMOL
  6. DULOXETINE [Suspect]
     Active Substance: DULOXETINE
  7. MAGNESIUM OXIDE [Suspect]
     Active Substance: MAGNESIUM OXIDE
  8. TAMSULOSIN [Suspect]
     Active Substance: TAMSULOSIN
  9. BUPROPION [Suspect]
     Active Substance: BUPROPION
  10. TRAZODONE [Suspect]
     Active Substance: TRAZODONE HYDROCHLORIDE

REACTIONS (3)
  - Distributive shock [Recovered/Resolved]
  - Intentional overdose [Unknown]
  - Depressed level of consciousness [Unknown]
